FAERS Safety Report 7806692-9 (Version None)
Quarter: 2011Q4

REPORT INFORMATION
  Report Type: 
  Country: None (occurrence: None)
  Receive Date: 20111011
  Receipt Date: 20111006
  Transmission Date: 20120403
  Serious: Yes (Other)
  Sender: FDA-Public Use
  Company Number: US-JNJFOC-20111003141

PATIENT

DRUGS (3)
  1. STELARA [Suspect]
     Indication: PSORIASIS
     Route: 058
  2. STEROIDS NOS [Suspect]
     Indication: SARCOIDOSIS
  3. SIMPONI [Suspect]
     Indication: PSORIASIS
     Route: 058

REACTIONS (2)
  - SARCOIDOSIS [None]
  - PSORIASIS [None]
